FAERS Safety Report 19025300 (Version 1)
Quarter: 2021Q1

REPORT INFORMATION
  Report Type: Spontaneous
  Country: US (occurrence: US)
  Receive Date: 20210316
  Receipt Date: 20210316
  Transmission Date: 20210420
  Serious: Yes (Hospitalization)
  Sender: FDA-Public Use
  Company Number: None

PATIENT
  Age: 60 Year
  Sex: Male
  Weight: 88 kg

DRUGS (1)
  1. NAFCILLIN [Suspect]
     Active Substance: NAFCILLIN SODIUM
     Indication: WOUND INFECTION
     Route: 042
     Dates: start: 20180820, end: 20180918

REACTIONS (6)
  - Blister [None]
  - Urticaria [None]
  - Pruritus [None]
  - Joint stiffness [None]
  - Rash [None]
  - Therapeutic product effect incomplete [None]

NARRATIVE: CASE EVENT DATE: 20180921
